FAERS Safety Report 24351512 (Version 1)
Quarter: 2024Q3

REPORT INFORMATION
  Report Type: Report from Study
  Country: US (occurrence: US)
  Receive Date: 20240923
  Receipt Date: 20240923
  Transmission Date: 20241017
  Serious: No
  Sender: ROCHE
  Company Number: US-ROCHE-2880538

PATIENT
  Age: 64 Year
  Sex: Female
  Weight: 55.0 kg

DRUGS (8)
  1. HERCEPTIN [Suspect]
     Active Substance: TRASTUZUMAB
     Indication: Ovarian cancer
     Dosage: LOADING DOSE 8MG/KG, THEN 6MG/KG IF EXCEED 3 WEEKS IT NEED TO BE RELOADED
     Route: 042
     Dates: start: 20210405
  2. HERCEPTIN [Suspect]
     Active Substance: TRASTUZUMAB
     Indication: HER2 positive ovarian cancer
     Route: 042
  3. PERJETA [Suspect]
     Active Substance: PERTUZUMAB
     Indication: Ovarian cancer
     Dosage: 840 MG AS A LOADING DOSE
     Route: 042
     Dates: start: 20210607
  4. PERJETA [Suspect]
     Active Substance: PERTUZUMAB
     Indication: HER2 positive ovarian cancer
     Route: 042
  5. DOXIL [Suspect]
     Active Substance: DOXORUBICIN HYDROCHLORIDE
     Indication: HER2 positive ovarian cancer
     Route: 065
     Dates: start: 202308, end: 202312
  6. CARBOPLATIN [Suspect]
     Active Substance: CARBOPLATIN
     Indication: HER2 positive ovarian cancer
     Route: 042
     Dates: start: 20171127, end: 20171218
  7. CARBOPLATIN [Suspect]
     Active Substance: CARBOPLATIN
     Route: 042
     Dates: start: 20180116, end: 20180319
  8. CARBOPLATIN [Suspect]
     Active Substance: CARBOPLATIN
     Route: 065
     Dates: start: 202308, end: 202312

REACTIONS (2)
  - Off label use [Unknown]
  - Onychoclasis [Recovered/Resolved]
